FAERS Safety Report 5774574-2 (Version None)
Quarter: 2008Q2

REPORT INFORMATION
  Report Type: 
  Country: None (occurrence: None)
  Receive Date: 20080612
  Receipt Date: 20080530
  Transmission Date: 20081010
  Serious: Yes (Other)
  Sender: FDA-Public Use
  Company Number: 2008BI014017

PATIENT
  Age: 43 Year
  Sex: Female
  Weight: 69.8539 kg

DRUGS (13)
  1. TYSABRI [Suspect]
     Indication: MULTIPLE SCLEROSIS
     Dosage: 300 MG;QM;IV
     Route: 042
     Dates: start: 20071015, end: 20080527
  2. AMANTADINE HCL [Concomitant]
  3. AMITRIPTYLINE HCL [Concomitant]
  4. CARISOPRODOL [Concomitant]
  5. CLONAZEPAM [Concomitant]
  6. CYMBALTA [Concomitant]
  7. FAMVIR [Concomitant]
  8. GEODON [Concomitant]
  9. LASIX [Concomitant]
  10. PROVIGIL [Concomitant]
  11. ZONISAMIDE [Concomitant]
  12. ZYRTEC [Concomitant]
  13. TOPAMAX [Concomitant]

REACTIONS (2)
  - MALIGNANT MELANOMA [None]
  - NERVE DEGENERATION [None]
